FAERS Safety Report 8046351-3 (Version None)
Quarter: 2012Q1

REPORT INFORMATION
  Report Type: 
  Country: None (occurrence: None)
  Receive Date: 20120113
  Receipt Date: 20120103
  Transmission Date: 20120608
  Serious: No
  Sender: FDA-Public Use
  Company Number: US-PFIZER INC-2012002086

PATIENT
  Age: 40 Year
  Sex: Female
  Weight: 72.562 kg

DRUGS (1)
  1. CHANTIX [Suspect]
     Dosage: UNK
     Route: 048

REACTIONS (4)
  - DRUG INEFFECTIVE [None]
  - BONE PAIN [None]
  - APATHY [None]
  - ABNORMAL BEHAVIOUR [None]
